FAERS Safety Report 25124940 (Version 1)
Quarter: 2025Q1

REPORT INFORMATION
  Report Type: Spontaneous
  Country: DE (occurrence: DE)
  Receive Date: 20250326
  Receipt Date: 20250326
  Transmission Date: 20250408
  Serious: Yes (Other)
  Sender: BAUSCH AND LOMB
  Company Number: DE-MLMSERVICE-20250317-PI445284-00117-1

PATIENT
  Age: 42 Year
  Sex: Female

DRUGS (2)
  1. DEXAMETHASONE [Suspect]
     Active Substance: DEXAMETHASONE
     Indication: Nerve block
     Route: 065
  2. MEPIVACAINE [Suspect]
     Active Substance: MEPIVACAINE HYDROCHLORIDE
     Indication: Nerve block
     Route: 065

REACTIONS (1)
  - Horner^s syndrome [Recovered/Resolved]
